FAERS Safety Report 8759611 (Version 2)
Quarter: 2016Q1

REPORT INFORMATION
  Report Type: Report from Study
  Country: JP (occurrence: JP)
  Receive Date: 20120829
  Receipt Date: 20160120
  Transmission Date: 20160526
  Serious: Yes (Hospitalization)
  Sender: FDA-Public Use
  Company Number: JP-ASTRAZENECA-2012SE50564

PATIENT
  Age: 55 Year
  Sex: Male

DRUGS (12)
  1. CARNACULIN [Concomitant]
     Active Substance: KALLIDINOGENASE
     Route: 065
     Dates: start: 20060522
  2. CRESTOR [Suspect]
     Active Substance: ROSUVASTATIN CALCIUM
     Indication: HYPERCHOLESTEROLAEMIA
     Route: 048
     Dates: start: 20120326, end: 20120621
  3. MENILET [Concomitant]
     Route: 065
     Dates: start: 20060522
  4. AMARYL [Concomitant]
     Active Substance: GLIMEPIRIDE
     Indication: DIABETES MELLITUS
     Route: 065
     Dates: start: 20080128
  5. ACINON [Concomitant]
     Active Substance: NIZATIDINE
     Route: 065
     Dates: start: 20080128
  6. ACTOS [Concomitant]
     Active Substance: PIOGLITAZONE HYDROCHLORIDE
     Indication: DIABETES MELLITUS
     Route: 065
     Dates: start: 20080128
  7. METGLUCO [Concomitant]
     Active Substance: METFORMIN HYDROCHLORIDE
     Indication: DIABETES MELLITUS
     Route: 065
     Dates: start: 20110725
  8. OPALMON [Concomitant]
     Active Substance: LIMAPROST
     Route: 065
     Dates: start: 20060522
  9. METHYCOBAL [Concomitant]
     Active Substance: METHYLCOBALAMIN
     Route: 065
     Dates: start: 20060522
  10. GOSHAJINKIGAN [Concomitant]
     Active Substance: HERBALS
     Route: 048
     Dates: start: 20060522
  11. NICOTINAMIDE [Concomitant]
     Active Substance: NIACINAMIDE
     Route: 065
     Dates: start: 20060522
  12. GLACTIV [Concomitant]
     Active Substance: SITAGLIPTIN
     Indication: DIABETES MELLITUS
     Route: 065
     Dates: start: 20110124

REACTIONS (2)
  - Constipation [Recovered/Resolved]
  - Decreased appetite [Recovered/Resolved]

NARRATIVE: CASE EVENT DATE: 20120606
